FAERS Safety Report 21022907 (Version 1)
Quarter: 2022Q2

REPORT INFORMATION
  Report Type: Spontaneous
  Country: US (occurrence: None)
  Receive Date: 20220629
  Receipt Date: 20220629
  Transmission Date: 20220721
  Serious: No
  Sender: FDA-Public Use
  Company Number: None

PATIENT
  Age: 73 Year
  Sex: Female
  Weight: 62.1 kg

DRUGS (1)
  1. FLUOXETINE HYDROCHLORIDE [Suspect]
     Active Substance: FLUOXETINE HYDROCHLORIDE
     Indication: Depression
     Dosage: OTHER QUANTITY : 90 CAPSULE(S);?
     Route: 048
     Dates: start: 20220301, end: 20220629

REACTIONS (15)
  - Lethargy [None]
  - Crying [None]
  - Pain [None]
  - Throat irritation [None]
  - Arthritis [None]
  - Chills [None]
  - Hyperhidrosis [None]
  - Poor quality sleep [None]
  - Somnolence [None]
  - Headache [None]
  - Hyperchlorhydria [None]
  - Dizziness [None]
  - Nasal congestion [None]
  - Constipation [None]
  - Hot flush [None]

NARRATIVE: CASE EVENT DATE: 20220628
